FAERS Safety Report 18792323 (Version 1)
Quarter: 2021Q1

REPORT INFORMATION
  Report Type: Spontaneous
  Country: US (occurrence: US)
  Receive Date: 20210127
  Receipt Date: 20210127
  Transmission Date: 20210419
  Serious: No
  Sender: FDA-Public Use
  Company Number: US-TEVA-2020-US-1865104

PATIENT
  Age: 81 Year
  Sex: Female

DRUGS (7)
  1. LIPITOR 80 MG TABLET [Concomitant]
  2. MIRTAZAPINE 7.5 MG TABLET [Concomitant]
     Active Substance: MIRTAZAPINE
  3. SERTRALINE 100 MG TABLET [Concomitant]
     Active Substance: SERTRALINE HYDROCHLORIDE
  4. LOSARTAN 50 MG TABLET [Concomitant]
  5. VITAMIN D 10,000 IU CAPSULE [Concomitant]
     Dosage: 10 000 IU
  6. HYDROCHLOROTHIAZIDE 12.5 MG TABLET [Concomitant]
     Active Substance: HYDROCHLOROTHIAZIDE
  7. AUSTEDO [Suspect]
     Active Substance: DEUTETRABENAZINE
     Indication: TARDIVE DYSKINESIA
     Dosage: 18 MILLIGRAM DAILY;
     Route: 065
     Dates: start: 20201215

REACTIONS (1)
  - Skin discolouration [Unknown]

NARRATIVE: CASE EVENT DATE: 202012
